FAERS Safety Report 25990620 (Version 2)
Quarter: 2025Q4

REPORT INFORMATION
  Report Type: Report from Study
  Country: EU (occurrence: EU)
  Receive Date: 20251103
  Receipt Date: 20251113
  Transmission Date: 20260117
  Serious: Yes (Hospitalization, Other)
  Sender: MYLAN
  Company Number: EU-GSK-IT2025GSK130943

PATIENT
  Age: 77 Year
  Sex: Male
  Weight: 168 kg

DRUGS (28)
  1. POMALIDOMIDE [Suspect]
     Active Substance: POMALIDOMIDE
     Indication: Plasma cell myeloma
     Dosage: 2 MILLIGRAM, QD
     Dates: start: 20250912, end: 20250922
  2. POMALIDOMIDE [Suspect]
     Active Substance: POMALIDOMIDE
     Dosage: 2 MILLIGRAM, QD
     Route: 048
     Dates: start: 20250912, end: 20250922
  3. POMALIDOMIDE [Suspect]
     Active Substance: POMALIDOMIDE
     Dosage: 2 MILLIGRAM, QD
     Route: 048
     Dates: start: 20250912, end: 20250922
  4. POMALIDOMIDE [Suspect]
     Active Substance: POMALIDOMIDE
     Dosage: 2 MILLIGRAM, QD
     Dates: start: 20250912, end: 20250922
  5. BLENREP [Suspect]
     Active Substance: BELANTAMAB MAFODOTIN-BLMF
     Indication: Plasma cell myeloma
     Dosage: 2.5 MILLIGRAM/KILOGRAM
  6. BLENREP [Suspect]
     Active Substance: BELANTAMAB MAFODOTIN-BLMF
     Dosage: 2.5 MILLIGRAM/KILOGRAM
  7. BLENREP [Suspect]
     Active Substance: BELANTAMAB MAFODOTIN-BLMF
     Dosage: 2.5 MILLIGRAM/KILOGRAM
     Route: 042
  8. BLENREP [Suspect]
     Active Substance: BELANTAMAB MAFODOTIN-BLMF
     Dosage: 2.5 MILLIGRAM/KILOGRAM
     Route: 042
  9. BLENREP [Suspect]
     Active Substance: BELANTAMAB MAFODOTIN-BLMF
     Dosage: 1.9 MILLIGRAM/KILOGRAM
  10. BLENREP [Suspect]
     Active Substance: BELANTAMAB MAFODOTIN-BLMF
     Dosage: 1.9 MILLIGRAM/KILOGRAM
  11. BLENREP [Suspect]
     Active Substance: BELANTAMAB MAFODOTIN-BLMF
     Dosage: 1.9 MILLIGRAM/KILOGRAM
     Route: 042
  12. BLENREP [Suspect]
     Active Substance: BELANTAMAB MAFODOTIN-BLMF
     Dosage: 1.9 MILLIGRAM/KILOGRAM
     Route: 042
  13. DEXAMETHASONE [Suspect]
     Active Substance: DEXAMETHASONE
     Indication: Plasma cell myeloma
     Dosage: 8 MILLIGRAM, QW (TOTAL)
     Dates: start: 20250912, end: 20250922
  14. DEXAMETHASONE [Suspect]
     Active Substance: DEXAMETHASONE
     Dosage: 8 MILLIGRAM, QW (TOTAL)
     Route: 048
     Dates: start: 20250912, end: 20250922
  15. DEXAMETHASONE [Suspect]
     Active Substance: DEXAMETHASONE
     Dosage: 8 MILLIGRAM, QW (TOTAL)
     Route: 048
     Dates: start: 20250912, end: 20250922
  16. DEXAMETHASONE [Suspect]
     Active Substance: DEXAMETHASONE
     Dosage: 8 MILLIGRAM, QW (TOTAL)
     Dates: start: 20250912, end: 20250922
  17. CEFTRIAXONE [Concomitant]
     Active Substance: CEFTRIAXONE
     Indication: Antibiotic therapy
     Dosage: UNK
  18. CEFTRIAXONE [Concomitant]
     Active Substance: CEFTRIAXONE
     Dosage: UNK
     Route: 065
  19. CEFTRIAXONE [Concomitant]
     Active Substance: CEFTRIAXONE
     Dosage: UNK
     Route: 065
  20. CEFTRIAXONE [Concomitant]
     Active Substance: CEFTRIAXONE
     Dosage: UNK
  21. ENOXAPARIN [Concomitant]
     Active Substance: ENOXAPARIN
     Indication: Thrombosis prophylaxis
     Dosage: 4000 DOSAGE FORM, QD
     Dates: start: 20250912, end: 20250922
  22. ENOXAPARIN [Concomitant]
     Active Substance: ENOXAPARIN
     Dosage: 4000 DOSAGE FORM, QD
     Route: 058
     Dates: start: 20250912, end: 20250922
  23. ENOXAPARIN [Concomitant]
     Active Substance: ENOXAPARIN
     Dosage: 4000 DOSAGE FORM, QD
     Route: 058
     Dates: start: 20250912, end: 20250922
  24. ENOXAPARIN [Concomitant]
     Active Substance: ENOXAPARIN
     Dosage: 4000 DOSAGE FORM, QD
     Dates: start: 20250912, end: 20250922
  25. CEFPIROME [Concomitant]
     Active Substance: CEFPIROME
     Indication: Antibiotic therapy
     Dosage: UNK
  26. CEFPIROME [Concomitant]
     Active Substance: CEFPIROME
     Dosage: UNK
     Route: 065
  27. CEFPIROME [Concomitant]
     Active Substance: CEFPIROME
     Dosage: UNK
     Route: 065
  28. CEFPIROME [Concomitant]
     Active Substance: CEFPIROME
     Dosage: UNK

REACTIONS (5)
  - Deep vein thrombosis [Not Recovered/Not Resolved]
  - Platelet count decreased [Recovered/Resolved]
  - Pneumonia [Recovered/Resolved]
  - Keratopathy [Recovering/Resolving]
  - Urinary tract infection [Recovered/Resolved]

NARRATIVE: CASE EVENT DATE: 20250919
